FAERS Safety Report 25503012 (Version 1)
Quarter: 2025Q3

REPORT INFORMATION
  Report Type: Spontaneous
  Country: JP (occurrence: JP)
  Receive Date: 20250702
  Receipt Date: 20250702
  Transmission Date: 20251020
  Serious: Yes (Other)
  Sender: ASTELLAS
  Company Number: JP-ASTELLAS-2025-AER-034775

PATIENT
  Age: 6 Decade
  Sex: Male

DRUGS (4)
  1. PROGRAF [Suspect]
     Active Substance: TACROLIMUS
     Indication: Allogenic stem cell transplantation
     Route: 048
     Dates: end: 2024
  2. PROGRAF [Suspect]
     Active Substance: TACROLIMUS
     Indication: Allogenic stem cell transplantation
     Route: 042
     Dates: start: 2024
  3. IBRUTINIB [Concomitant]
     Active Substance: IBRUTINIB
     Indication: Ascites
     Route: 065
  4. ADONA [Concomitant]
     Indication: Product used for unknown indication
     Route: 065

REACTIONS (3)
  - Immunosuppressant drug level increased [Unknown]
  - Renal impairment [Unknown]
  - Hepatic function abnormal [Unknown]

NARRATIVE: CASE EVENT DATE: 20240101
